FAERS Safety Report 7776630 (Version 2)
Quarter: 2013Q1

REPORT INFORMATION
  Report Type: Spontaneous
  Country: US (occurrence: US)
  Receive Date: 20110127
  Receipt Date: 20130205
  Transmission Date: 20140127
  Serious: No
  Sender: FDA-Public Use
  Company Number: US-PFIZER INC-2011016631

PATIENT
  Sex: Female
  Weight: 90.7 kg

DRUGS (3)
  1. PREPARATION H HYDROCORTISONE [Suspect]
     Indication: CONSTIPATION
     Dosage: UNK
  2. PREPARATION H HEMORRHOIDAL SUPPOSITORIES [Suspect]
     Indication: CONSTIPATION
     Dosage: UNK
     Dates: start: 201101, end: 201101
  3. NORVASC [Concomitant]
     Indication: HYPERTENSION
     Dosage: 5 MG, 1X/DAY
     Route: 048

REACTIONS (1)
  - Anal pruritus [Recovered/Resolved]
